FAERS Safety Report 14691878 (Version 1)
Quarter: 2018Q1

REPORT INFORMATION
  Report Type: Spontaneous
  Country: US (occurrence: US)
  Receive Date: 20180329
  Receipt Date: 20180329
  Transmission Date: 20180509
  Serious: No
  Sender: FDA-Public Use
  Company Number: US-B.I. PHARMACEUTICALS,INC./RIDGEFIELD-2018-BI-016591

PATIENT
  Age: 80 Year
  Sex: Male

DRUGS (4)
  1. PRADAXA [Suspect]
     Active Substance: DABIGATRAN ETEXILATE MESYLATE
     Indication: ATRIAL FIBRILLATION
  2. AMLODIPINE [Concomitant]
     Active Substance: AMLODIPINE BESYLATE
     Indication: HYPERTENSION
     Dosage: BID;  FORM STRENGTH: 5MG
     Route: 048
  3. LISINOPRIL. [Concomitant]
     Active Substance: LISINOPRIL
     Indication: HYPERTENSION
     Dosage: BID;  FORM STRENGTH: 20MG
  4. PRADAXA [Suspect]
     Active Substance: DABIGATRAN ETEXILATE MESYLATE
     Indication: CEREBROVASCULAR ACCIDENT PROPHYLAXIS
     Route: 048
     Dates: start: 201707, end: 20180306

REACTIONS (5)
  - Dysphagia [Unknown]
  - Abdominal discomfort [Unknown]
  - Dyspepsia [Unknown]
  - Eructation [Unknown]
  - Dyspnoea [Unknown]

NARRATIVE: CASE EVENT DATE: 201707
